FAERS Safety Report 5570236-5 (Version None)
Quarter: 2007Q4

REPORT INFORMATION
  Report Type: 
  Country: None (occurrence: None)
  Receive Date: 20071219
  Receipt Date: 20071213
  Transmission Date: 20080405
  Serious: Yes (Hospitalization)
  Sender: FDA-Public Use
  Company Number: 2007337638

PATIENT
  Age: 16 Year
  Sex: Male

DRUGS (1)
  1. BENADRYL [Suspect]
     Dosage: 16 CAPLETS,ORAL

REACTIONS (4)
  - ABASIA [None]
  - DIZZINESS [None]
  - INCORRECT DOSE ADMINISTERED [None]
  - VOMITING [None]
